FAERS Safety Report 8581544-8 (Version None)
Quarter: 2012Q3

REPORT INFORMATION
  Report Type: 
  Country: None (occurrence: None)
  Receive Date: 20120809
  Receipt Date: 20111214
  Transmission Date: 20120928
  Serious: No
  Sender: FDA-Public Use
  Company Number: US-MUTUAL PHARMACEUTICAL COMPANY, INC.-DXCY20110017

PATIENT
  Sex: Female
  Weight: 78.542 kg

DRUGS (15)
  1. AVAPRO [Concomitant]
     Indication: HYPERTENSION
     Route: 048
  2. SPIRIVA [Concomitant]
     Indication: ASTHMA
  3. ASMANEX TWISTHALER [Concomitant]
     Indication: ASTHMA
  4. PRILOSEC [Concomitant]
     Route: 048
     Dates: start: 20120101
  5. LEVOTHYROXINE SODIUM [Concomitant]
     Indication: THYROIDECTOMY
     Route: 048
     Dates: start: 20010101
  6. CITRACAL W/ VITAMIN D [Concomitant]
     Indication: OSTEOPENIA
     Route: 048
  7. DOXYCYCLINE HYCLATE [Suspect]
     Indication: INFLUENZA LIKE ILLNESS
     Route: 048
     Dates: start: 20111101, end: 20111108
  8. NIFEDIAC CC [Concomitant]
     Indication: HYPERTENSION
     Route: 048
  9. VITAMIN D [Concomitant]
     Indication: PRODUCT USED FOR UNKNOWN INDICATION
     Route: 048
  10. VITAMIN B-12 [Concomitant]
     Indication: NEUROPATHY PERIPHERAL
  11. PRILOSEC [Concomitant]
     Indication: OESOPHAGITIS
     Route: 048
     Dates: start: 20000101, end: 20111201
  12. OMNARIS [Concomitant]
     Indication: RHINITIS
     Route: 045
  13. PRILOSEC [Concomitant]
     Route: 048
     Dates: start: 20111201, end: 20120101
  14. ALIGN [Concomitant]
     Indication: ROUTINE HEALTH MAINTENANCE
     Route: 048
  15. DOXYCYCLINE HYCLATE [Suspect]
     Route: 048
     Dates: start: 20111208, end: 20111218

REACTIONS (1)
  - GASTROOESOPHAGEAL REFLUX DISEASE [None]
